FAERS Safety Report 7248259-X (Version None)
Quarter: 2011Q1

REPORT INFORMATION
  Report Type: 
  Country: None (occurrence: None)
  Receive Date: 20110127
  Receipt Date: 20110119
  Transmission Date: 20110831
  Serious: Yes (Other)
  Sender: FDA-Public Use
  Company Number: US-ALLERGAN-1100787US

PATIENT
  Age: 66 Year
  Sex: Female

DRUGS (3)
  1. BOTOXA? [Suspect]
     Indication: BLEPHAROSPASM
     Dosage: 110 UNITS, SINGLE Q 3-4 MO
     Route: 030
     Dates: start: 20101010, end: 20101010
  2. DYSPORT [Concomitant]
     Indication: PRODUCT USED FOR UNKNOWN INDICATION
     Dosage: UNK
     Dates: start: 20110118, end: 20110118
  3. BOTOXA? [Suspect]
     Indication: TORTICOLLIS

REACTIONS (14)
  - CHEST PAIN [None]
  - CHILLS [None]
  - NAUSEA [None]
  - HYPERTENSION [None]
  - MUSCULAR WEAKNESS [None]
  - DRY EYE [None]
  - HEADACHE [None]
  - FATIGUE [None]
  - ASTHENIA [None]
  - CORNEAL REFLEX DECREASED [None]
  - WEIGHT DECREASED [None]
  - DYSPNOEA [None]
  - DECREASED APPETITE [None]
  - VOMITING [None]
